FAERS Safety Report 9360105 (Version 3)
Quarter: 2013Q3

REPORT INFORMATION
  Report Type: Spontaneous
  Country: US (occurrence: US)
  Receive Date: 20130621
  Receipt Date: 20130807
  Transmission Date: 20140515
  Serious: Yes (Other)
  Sender: FDA-Public Use
  Company Number: US-PFIZER INC-2013183701

PATIENT
  Age: 61 Year
  Sex: Male

DRUGS (2)
  1. SUTENT [Suspect]
     Indication: RENAL CANCER
     Dosage: 50 MG ONCE DAILY CYCLIC (2 WEEKS ON, 2 WEEKS OFF)
     Route: 048
     Dates: start: 20120511
  2. SUTENT [Suspect]
     Dosage: 50 MG, CYCLIC (ONCE DAILY X 4WKS, 2WKS OFF)
     Route: 048
     Dates: start: 20120908

REACTIONS (4)
  - Glossitis [Unknown]
  - Gingival pain [Unknown]
  - Diarrhoea [Unknown]
  - Rash [Unknown]
